FAERS Safety Report 23761708 (Version 1)
Quarter: 2024Q2

REPORT INFORMATION
  Report Type: Spontaneous
  Country: US (occurrence: US)
  Receive Date: 20240419
  Receipt Date: 20240419
  Transmission Date: 20240716
  Serious: Yes (Other)
  Sender: FDA-Public Use
  Company Number: US-TEVA-VS-3184770

PATIENT
  Age: 33 Year
  Sex: Male
  Weight: 81.65 kg

DRUGS (1)
  1. BUDESONIDE [Suspect]
     Active Substance: BUDESONIDE
     Indication: Nasal polyps
     Dosage: FORM STRENGTH: 1/2 MG/ML, DOSE OF 1 VIAL TWICE A DAY, NASAL IRRIGATION WITH DISTILLED WATER
     Route: 045
     Dates: start: 20231207, end: 202403

REACTIONS (5)
  - Suicidal ideation [Recovering/Resolving]
  - Psychiatric symptom [Recovering/Resolving]
  - Insomnia [Recovering/Resolving]
  - Feeling abnormal [Recovering/Resolving]
  - Anxiety [Recovering/Resolving]
